FAERS Safety Report 6007302-6 (Version None)
Quarter: 2008Q4

REPORT INFORMATION
  Report Type: 
  Country: None (occurrence: None)
  Receive Date: 20081217
  Receipt Date: 20080227
  Transmission Date: 20090506
  Serious: No
  Sender: FDA-Public Use
  Company Number: US-ASTRAZENECA-2008UW04157

PATIENT
  Sex: Female
  Weight: 55.8 kg

DRUGS (6)
  1. CRESTOR [Suspect]
     Indication: BLOOD CHOLESTEROL INCREASED
     Route: 048
     Dates: start: 20070901
  2. METFORMIN HCL [Concomitant]
  3. GLUCOSIDE [Concomitant]
  4. PLAVIX [Concomitant]
  5. HYDROCHLOROTHIAZIDE [Concomitant]
  6. TRIAMTERENE [Concomitant]

REACTIONS (2)
  - MUSCULOSKELETAL PAIN [None]
  - PAIN IN EXTREMITY [None]
